FAERS Safety Report 12588481 (Version 1)
Quarter: 2016Q3

REPORT INFORMATION
  Report Type: Spontaneous
  Country: US (occurrence: US)
  Receive Date: 20160725
  Receipt Date: 20160725
  Transmission Date: 20161109
  Serious: No
  Sender: FDA-Public Use
  Company Number: US-JNJFOC-20160701435

PATIENT
  Age: 45 Year
  Sex: Female
  Weight: 52.62 kg

DRUGS (1)
  1. TYLENOL EXTRA STRENGTH [Suspect]
     Active Substance: ACETAMINOPHEN
     Indication: TOOTHACHE
     Dosage: 1-2 CAPLETS, 2-4 TIMES
     Route: 048

REACTIONS (2)
  - Underdose [Unknown]
  - Drug effect decreased [Unknown]
